FAERS Safety Report 5643843-9 (Version None)
Quarter: 2008Q1

REPORT INFORMATION
  Report Type: 
  Country: None (occurrence: None)
  Receive Date: 20080226
  Receipt Date: 20080213
  Transmission Date: 20080703
  Serious: Yes (Other)
  Sender: FDA-Public Use
  Company Number: 2007BI019612

PATIENT
  Age: 60 Year
  Sex: Female
  Weight: 68.0396 kg

DRUGS (1)
  1. TYSABRI [Suspect]
     Indication: MULTIPLE SCLEROSIS
     Dosage: 300 MG; QM; IV
     Route: 042
     Dates: start: 20061204, end: 20070830

REACTIONS (4)
  - BONE NEOPLASM MALIGNANT [None]
  - COSTOCHONDRITIS [None]
  - ROAD TRAFFIC ACCIDENT [None]
  - UPPER RESPIRATORY TRACT INFECTION [None]
